FAERS Safety Report 5657975-2 (Version None)
Quarter: 2008Q1

REPORT INFORMATION
  Report Type: 
  Country: None (occurrence: None)
  Receive Date: 20080310
  Receipt Date: 20080228
  Transmission Date: 20080703
  Serious: Yes (Hospitalization)
  Sender: FDA-Public Use
  Company Number: PHBS2008NL02804

PATIENT
  Age: 85 Year
  Sex: Female

DRUGS (3)
  1. LETROZOLE [Suspect]
     Indication: BREAST CANCER METASTATIC
  2. TRIAMTERENE AND HYDROCHLOROTHIAZID ^HARRIS^ [Concomitant]
     Dosage: 1 DF, QD
     Dates: start: 19970101
  3. METFORMIN HCL [Concomitant]
     Dosage: 850 MG, BID
     Dates: start: 20040101

REACTIONS (2)
  - HEPATIC FUNCTION ABNORMAL [None]
  - JAUNDICE [None]
